FAERS Safety Report 9281084 (Version 1)
Quarter: 2013Q2

REPORT INFORMATION
  Report Type: Spontaneous
  Country: US (occurrence: US)
  Receive Date: 20130509
  Receipt Date: 20130509
  Transmission Date: 20140414
  Serious: No
  Sender: FDA-Public Use
  Company Number: US-PFIZER INC-2013143014

PATIENT
  Age: 62 Year
  Sex: Female
  Weight: 86.17 kg

DRUGS (3)
  1. EFFEXOR XR [Suspect]
     Indication: DEPRESSION
     Dosage: 150 MG, DAILY
  2. EFFEXOR XR [Suspect]
     Dosage: 75 MG, DAILY
  3. EFFEXOR XR [Suspect]
     Dosage: 150 MG, DAILY

REACTIONS (1)
  - Night sweats [Recovering/Resolving]
